FAERS Safety Report 18492239 (Version 2)
Quarter: 2020Q4

REPORT INFORMATION
  Report Type: Report from Study
  Country: JP (occurrence: JP)
  Receive Date: 20201111
  Receipt Date: 20201113
  Transmission Date: 20210114
  Serious: Yes (Hospitalization)
  Sender: FDA-Public Use
  Company Number: JP-EISAI MEDICAL RESEARCH-EC-2020-083438

PATIENT
  Age: 73 Year
  Sex: Male
  Weight: 72 kg

DRUGS (3)
  1. ACTOS [Concomitant]
     Active Substance: PIOGLITAZONE HYDROCHLORIDE
     Indication: DIABETES MELLITUS
  2. LENVIMA [Suspect]
     Active Substance: LENVATINIB
     Route: 048
     Dates: start: 20200619
  3. LENVIMA [Suspect]
     Active Substance: LENVATINIB
     Indication: HEPATOCELLULAR CARCINOMA
     Route: 048
     Dates: start: 20200522, end: 20200527

REACTIONS (2)
  - Tumour lysis syndrome [Recovered/Resolved]
  - Hepatic function abnormal [Unknown]

NARRATIVE: CASE EVENT DATE: 20200528
